FAERS Safety Report 19670310 (Version 1)
Quarter: 2021Q3

REPORT INFORMATION
  Report Type: Spontaneous
  Country: US (occurrence: US)
  Receive Date: 20210806
  Receipt Date: 20210806
  Transmission Date: 20211014
  Serious: Yes (Hospitalization)
  Sender: FDA-Public Use
  Company Number: US-SAOL THERAPEUTICS-2021SAO00072

PATIENT
  Age: 34 Year
  Sex: Male

DRUGS (2)
  1. LIORESAL [Suspect]
     Active Substance: BACLOFEN
     Indication: MUSCLE SPASTICITY
     Dosage: 1116.3 ?G, \DAY (ALSO REPORTED AS 1115 ?G/DAY)
     Route: 037
     Dates: end: 20210226
  2. LIORESAL [Suspect]
     Active Substance: BACLOFEN
     Dosage: 649.9 ?G, \DAY (ALSO REPORTED AS 650 ?G/DAY)
     Route: 037
     Dates: start: 20210226

REACTIONS (3)
  - Device failure [Recovered/Resolved]
  - Pruritus [Recovered/Resolved]
  - Muscle twitching [Recovered/Resolved]

NARRATIVE: CASE EVENT DATE: 20190823
